FAERS Safety Report 4993582-2 (Version None)
Quarter: 2006Q2

REPORT INFORMATION
  Report Type: 
  Country: None (occurrence: None)
  Receive Date: 20060505
  Receipt Date: 20060425
  Transmission Date: 20061013
  Serious: Yes (Life-Threatening, Hospitalization)
  Sender: FDA-Public Use
  Company Number: GB-BRISTOL-MYERS SQUIBB COMPANY-13356316

PATIENT
  Age: 79 Year
  Sex: Female

DRUGS (6)
  1. CEPHRADINE [Suspect]
     Indication: CELLULITIS
     Route: 048
     Dates: start: 20051027, end: 20051029
  2. GLICLAZIDE [Concomitant]
     Indication: DIABETES MELLITUS
     Route: 048
     Dates: end: 20051101
  3. DOXAZOSIN [Concomitant]
     Route: 048
  4. OMEPRAZOLE [Concomitant]
     Route: 048
  5. SIMVASTATIN [Concomitant]
     Route: 048
  6. ENALAPRIL MALEATE [Concomitant]
     Route: 048

REACTIONS (2)
  - BLOOD GLUCOSE DECREASED [None]
  - COMA [None]
